FAERS Safety Report 24213374 (Version 1)
Quarter: 2024Q3

REPORT INFORMATION
  Report Type: Spontaneous
  Country: ES (occurrence: None)
  Receive Date: 20240815
  Receipt Date: 20240815
  Transmission Date: 20241017
  Serious: Yes (Other)
  Sender: ASTRAZENECA
  Company Number: 2024A185724

PATIENT
  Age: 52 Year
  Sex: Male

DRUGS (3)
  1. QUETIAPINE [Suspect]
     Active Substance: QUETIAPINE
     Route: 048
     Dates: start: 20240527, end: 20240616
  2. TRAZODONE HYDROCHLORIDE [Suspect]
     Active Substance: TRAZODONE HYDROCHLORIDE
     Route: 048
     Dates: start: 20240515, end: 20240614
  3. MEROPENEM [Suspect]
     Active Substance: MEROPENEM
     Indication: Infection
     Route: 048
     Dates: start: 20240528, end: 20240616

REACTIONS (2)
  - Eosinophilia [Recovered/Resolved]
  - Mixed liver injury [Recovered/Resolved]

NARRATIVE: CASE EVENT DATE: 20240602
